FAERS Safety Report 18618348 (Version 2)
Quarter: 2021Q1

REPORT INFORMATION
  Report Type: Spontaneous
  Country: US (occurrence: US)
  Receive Date: 20201215
  Receipt Date: 20210304
  Transmission Date: 20210419
  Serious: Yes (Life-Threatening, Other)
  Sender: FDA-Public Use
  Company Number: US-ROCHE-2733091

PATIENT
  Age: 65 Year
  Sex: Male
  Weight: 74.8 kg

DRUGS (1)
  1. OCREVUS [Suspect]
     Active Substance: OCRELIZUMAB
     Indication: MULTIPLE SCLEROSIS
     Dosage: FREQUENCY: 2, INTERVAL: 1 YEARS ?ONGOING ? YES
     Route: 042
     Dates: start: 20191008

REACTIONS (5)
  - Respiratory failure [Unknown]
  - Pneumothorax [Unknown]
  - COVID-19 pneumonia [Recovered/Resolved]
  - Gait disturbance [Unknown]
  - Atrial fibrillation [Unknown]

NARRATIVE: CASE EVENT DATE: 20201211
